FAERS Safety Report 4317154-8 (Version None)
Quarter: 2004Q1

REPORT INFORMATION
  Report Type: 
  Country: None (occurrence: None)
  Receive Date: 20040312
  Receipt Date: 20040225
  Transmission Date: 20041129
  Serious: Yes (Hospitalization)
  Sender: FDA-Public Use
  Company Number: ZONI001327

PATIENT
  Age: 20 Year
  Sex: Male

DRUGS (2)
  1. EXCEGRAN (ZONISAMIDE) [Suspect]
     Indication: CONVULSION
     Dosage: 200 MG ORAL
     Route: 048
     Dates: start: 19940714, end: 19950508
  2. VALPROATE SODIUM [Concomitant]

REACTIONS (12)
  - ANXIETY [None]
  - DRUG INEFFECTIVE [None]
  - EPILEPTIC PSYCHOSIS [None]
  - EYE DISORDER [None]
  - INSOMNIA [None]
  - MENTAL DISORDER [None]
  - MUTISM [None]
  - PERSECUTORY DELUSION [None]
  - PORIOMANIA [None]
  - STUPOR [None]
  - TONIC CONVULSION [None]
  - TREATMENT NONCOMPLIANCE [None]
